FAERS Safety Report 4358752-5 (Version None)
Quarter: 2004Q2

REPORT INFORMATION
  Report Type: 
  Country: None (occurrence: None)
  Receive Date: 20040511
  Receipt Date: 20040423
  Transmission Date: 20050107
  Serious: Yes (Hospitalization)
  Sender: FDA-Public Use
  Company Number: 2004212031DE

PATIENT
  Age: 34 Year
  Sex: Female
  Weight: 51.5 kg

DRUGS (3)
  1. FARMORUBICIN A(EPIRUBICIN HYDROCHLORIDE) POWDER, STERILE [Suspect]
     Indication: BREAST CANCER
     Dosage: 188 MG, CYCLE 1, IV  : CYCLE 2, IV
     Route: 042
     Dates: start: 20040310, end: 20040310
  2. FARMORUBICIN A(EPIRUBICIN HYDROCHLORIDE) POWDER, STERILE [Suspect]
     Indication: BREAST CANCER
     Dosage: 188 MG, CYCLE 1, IV  : CYCLE 2, IV
     Route: 042
     Dates: start: 20040331, end: 20040331
  3. NEUPOGEN [Concomitant]

REACTIONS (3)
  - BONE PAIN [None]
  - CHILLS [None]
  - PYREXIA [None]
